FAERS Safety Report 10687801 (Version 1)
Quarter: 2015Q1

REPORT INFORMATION
  Report Type: Spontaneous
  Country: DE (occurrence: DE)
  Receive Date: 20150102
  Receipt Date: 20150102
  Transmission Date: 20150720
  Serious: Yes (Hospitalization, Other)
  Sender: FDA-Public Use
  Company Number: DE-INCYTE CORPORATION-2014IN004082

PATIENT
  Age: 76 Year
  Sex: Male

DRUGS (4)
  1. JAKAFI [Suspect]
     Active Substance: RUXOLITINIB
     Indication: MYELOFIBROSIS
     Dosage: 15 MG, BID
     Route: 065
  2. JAKAFI [Suspect]
     Active Substance: RUXOLITINIB
     Dosage: 15 MG, BID
     Route: 065
  3. JAKAFI [Suspect]
     Active Substance: RUXOLITINIB
     Dosage: UNK, DOSE REDUCED
     Route: 065
  4. JAKAFI [Suspect]
     Active Substance: RUXOLITINIB
     Dosage: UNK, DOSE FURTHER REDUCED
     Route: 065

REACTIONS (5)
  - Platelet count decreased [Recovering/Resolving]
  - Haemorrhage [Unknown]
  - Oedema [Recovered/Resolved]
  - No therapeutic response [Unknown]
  - Feeling abnormal [Recovered/Resolved]
